FAERS Safety Report 10501950 (Version 2)
Quarter: 2015Q1

REPORT INFORMATION
  Report Type: Spontaneous
  Country: CA (occurrence: CA)
  Receive Date: 20141007
  Receipt Date: 20150115
  Transmission Date: 20150720
  Serious: Yes (Other)
  Sender: FDA-Public Use
  Company Number: CA-ELI_LILLY_AND_COMPANY-CA201410000452

PATIENT
  Age: 18 Year
  Sex: Female
  Weight: 72.56 kg

DRUGS (2)
  1. ALESSE 28 [Concomitant]
     Active Substance: ETHINYL ESTRADIOL\LEVONORGESTREL
  2. PROZAC [Suspect]
     Active Substance: FLUOXETINE HYDROCHLORIDE
     Indication: PRODUCT USED FOR UNKNOWN INDICATION
     Dosage: 50 MG, UNKNOWN
     Route: 048
     Dates: start: 20120211

REACTIONS (2)
  - Menstruation irregular [Unknown]
  - Papilloedema [Unknown]
